FAERS Safety Report 7733567-6 (Version None)
Quarter: 2011Q3

REPORT INFORMATION
  Report Type: 
  Country: None (occurrence: None)
  Receive Date: 20110901
  Receipt Date: 20110818
  Transmission Date: 20111222
  Serious: Yes (Other)
  Sender: FDA-Public Use
  Company Number: IT-ACCORD-010419

PATIENT
  Age: 54 Year
  Sex: Female

DRUGS (1)
  1. DOCETAXEL [Suspect]
     Indication: BREAST CANCER
     Dosage: 120.00-MG

REACTIONS (6)
  - LEUKOCYTOSIS [None]
  - GENERALISED ERYTHEMA [None]
  - RASH PUSTULAR [None]
  - RED BLOOD CELL SEDIMENTATION RATE INCREASED [None]
  - PYREXIA [None]
  - PSORIASIS [None]
